APPROVED DRUG PRODUCT: POTASSIUM CHLORIDE
Active Ingredient: POTASSIUM CHLORIDE
Strength: 20MEQ
Dosage Form/Route: TABLET, EXTENDED RELEASE;ORAL
Application: A206630 | Product #003
Applicant: CHARTWELL RX SCIENCES LLC
Approved: Mar 29, 2019 | RLD: No | RS: No | Type: DISCN